FAERS Safety Report 20016036 (Version 1)
Quarter: 2021Q4

REPORT INFORMATION
  Report Type: Spontaneous
  Country: US (occurrence: None)
  Receive Date: 20211102
  Receipt Date: 20211102
  Transmission Date: 20220303
  Serious: Yes (Hospitalization, Disabling, Other)
  Sender: FDA-Public Use
  Company Number: None

PATIENT
  Age: 54 Year
  Sex: Male
  Weight: 74.25 kg

DRUGS (1)
  1. HUMIRA [Suspect]
     Active Substance: ADALIMUMAB
     Indication: Rheumatoid arthritis
     Dosage: OTHER QUANTITY : 1 INJECTION(S);?OTHER FREQUENCY : TWICE A MONTH;?OTHER ROUTE : INJECTION;?
     Route: 050
     Dates: start: 20160501, end: 20210712

REACTIONS (8)
  - Therapy non-responder [None]
  - Mood swings [None]
  - Agitation [None]
  - Major depression [None]
  - Anger [None]
  - Abnormal behaviour [None]
  - Loss of employment [None]
  - Mania [None]

NARRATIVE: CASE EVENT DATE: 20190616
